FAERS Safety Report 5895445-7 (Version None)
Quarter: 2008Q3

REPORT INFORMATION
  Report Type: 
  Country: None (occurrence: None)
  Receive Date: 20080924
  Receipt Date: 20080915
  Transmission Date: 20090109
  Serious: Yes (Hospitalization, Other)
  Sender: FDA-Public Use
  Company Number: US-AVENTIS-200816086US

PATIENT
  Sex: Female
  Weight: 67.2 kg

DRUGS (8)
  1. LEFLUNOMIDE [Suspect]
     Dosage: DOSE: UNK
     Dates: start: 20000101, end: 20071028
  2. NAPROXEN [Suspect]
     Dosage: DOSE: UNK
     Dates: end: 20080410
  3. LEVOTHYROXINE SODIUM [Suspect]
     Dosage: DOSE: UNK
  4. ENBREL [Suspect]
     Indication: RHEUMATOID ARTHRITIS
     Route: 058
     Dates: start: 20010401
  5. IBANDRONATE [Concomitant]
     Dosage: DOSE: UNK
     Dates: start: 20060615
  6. TRIAMTERENE AND HYDROCHLOROTHIAZIDE [Concomitant]
     Dosage: DOSE: UNK
     Dates: start: 20060426, end: 20080410
  7. CENTRUM                            /00554501/ [Concomitant]
     Dosage: DOSE: UNK
  8. UNKNOWN DRUG [Concomitant]
     Dosage: DOSE: UNK

REACTIONS (10)
  - CEREBRAL ISCHAEMIA [None]
  - CHRONIC OBSTRUCTIVE PULMONARY DISEASE [None]
  - DYSARTHRIA [None]
  - DYSPHAGIA [None]
  - HYPERTHYROIDISM [None]
  - LUNG NEOPLASM [None]
  - MYASTHENIA GRAVIS [None]
  - OSTEOPOROSIS [None]
  - TRANSIENT ISCHAEMIC ATTACK [None]
  - WEIGHT DECREASED [None]
